FAERS Safety Report 5257241-3 (Version None)
Quarter: 2007Q1

REPORT INFORMATION
  Report Type: 
  Country: None (occurrence: None)
  Receive Date: 20070307
  Receipt Date: 20070305
  Transmission Date: 20070707
  Serious: Yes (Other)
  Sender: FDA-Public Use
  Company Number: DE-JNJFOC-20061203267

PATIENT
  Age: 57 Year
  Sex: Male
  Weight: 55 kg

DRUGS (9)
  1. REMICADE [Suspect]
     Indication: COLITIS ULCERATIVE
     Route: 042
  2. REMICADE [Suspect]
     Indication: ANKYLOSING SPONDYLITIS
     Dosage: 2 X 100MG/INFUSION AT A WEIGHT OF 55KG.
     Route: 042
  3. METOPROLOL SUCCINATE [Concomitant]
     Route: 065
  4. APPROVEL [Concomitant]
     Route: 065
  5. CORTISONE ACETATE [Concomitant]
     Route: 065
  6. ZOPIKLON [Concomitant]
     Route: 065
  7. MUSARIL [Concomitant]
     Route: 065
  8. VALURON [Concomitant]
     Route: 065
  9. OPIUM [Concomitant]
     Route: 065

REACTIONS (2)
  - BLADDER CANCER [None]
  - SQUAMOUS CELL CARCINOMA [None]
